FAERS Safety Report 5099131-5 (Version None)
Quarter: 2006Q3

REPORT INFORMATION
  Report Type: 
  Country: None (occurrence: None)
  Receive Date: 20060731
  Receipt Date: 20051129
  Transmission Date: 20061208
  Serious: Yes (Death, Hospitalization)
  Sender: FDA-Public Use
  Company Number: 219790

PATIENT
  Age: 80 Year
  Sex: Female

DRUGS (2)
  1. HERCEPTIN [Suspect]
     Indication: BREAST CANCER
     Dosage: 1/WEEK
     Dates: start: 20050901
  2. TAXOL [Concomitant]

REACTIONS (4)
  - ACUTE RESPIRATORY DISTRESS SYNDROME [None]
  - CARDIAC FAILURE ACUTE [None]
  - PNEUMONIA [None]
  - PULMONARY FIBROSIS [None]
